FAERS Safety Report 8235618-1 (Version None)
Quarter: 2012Q1

REPORT INFORMATION
  Report Type: 
  Country: None (occurrence: None)
  Receive Date: 20120326
  Receipt Date: 20120313
  Transmission Date: 20120608
  Serious: Yes (Hospitalization, Other)
  Sender: FDA-Public Use
  Company Number: FR-ELI_LILLY_AND_COMPANY-FR201203004237

PATIENT
  Age: 33 Year
  Sex: Male

DRUGS (1)
  1. OLANZAPINE [Suspect]
     Indication: SCHIZOPHRENIA
     Dosage: 405 MG, 2/W
     Route: 030
     Dates: start: 20100923

REACTIONS (7)
  - SOMNOLENCE [None]
  - DIZZINESS [None]
  - CONFUSIONAL STATE [None]
  - AKATHISIA [None]
  - RESTLESSNESS [None]
  - COORDINATION ABNORMAL [None]
  - DYSARTHRIA [None]
